FAERS Safety Report 8609830-3 (Version None)
Quarter: 2012Q3

REPORT INFORMATION
  Report Type: 
  Country: None (occurrence: None)
  Receive Date: 20120821
  Receipt Date: 20120611
  Transmission Date: 20120928
  Serious: No
  Sender: FDA-Public Use
  Company Number: US-009507513-1208USA007736

PATIENT

DRUGS (4)
  1. WELLBUTRIN [Concomitant]
  2. VICTRELIS [Suspect]
     Indication: HEPATITIS C
     Dosage: UNK, TID
     Dates: start: 20120420
  3. PEGINTERFERON ALFA-2A [Suspect]
     Indication: HEPATITIS C
     Dosage: 180 MICROGRAM, QW
     Dates: start: 20120323
  4. REBETOL [Suspect]
     Indication: HEPATITIS C
     Dosage: 1000 MG IN DIVIDED DOSE (1 IN 1 D)
     Dates: start: 20120323

REACTIONS (12)
  - HEADACHE [None]
  - DYSGEUSIA [None]
  - FEELING ABNORMAL [None]
  - EMOTIONAL DISORDER [None]
  - ANAEMIA [None]
  - PAIN [None]
  - ORAL CANDIDIASIS [None]
  - FUNGAL INFECTION [None]
  - MALAISE [None]
  - FATIGUE [None]
  - FURUNCLE [None]
  - MYALGIA [None]
